FAERS Safety Report 9331210 (Version 1)
Quarter: 2013Q2

REPORT INFORMATION
  Report Type: Spontaneous
  Country: AT (occurrence: AT)
  Receive Date: 20130605
  Receipt Date: 20130605
  Transmission Date: 20140414
  Serious: Yes (Death, Other)
  Sender: FDA-Public Use
  Company Number: AT-JNJFOC-20130503256

PATIENT
  Age: 76 Year
  Sex: Female

DRUGS (14)
  1. XARELTO [Suspect]
     Indication: CEREBROVASCULAR ACCIDENT PROPHYLAXIS
     Route: 048
     Dates: start: 20130304, end: 20130419
  2. XARELTO [Suspect]
     Indication: ATRIAL FIBRILLATION
     Route: 048
     Dates: start: 20130304, end: 20130419
  3. XARELTO [Suspect]
     Indication: PULMONARY EMBOLISM
     Route: 048
     Dates: start: 20130304, end: 20130419
  4. GLADEM [Suspect]
     Indication: PRODUCT USED FOR UNKNOWN INDICATION
     Route: 065
  5. NOMEXOR [Concomitant]
     Indication: HYPERTENSION
     Route: 065
  6. LISINOPRIL [Concomitant]
     Indication: HYPERTENSION
     Route: 065
  7. NOVALGIN [Concomitant]
     Indication: ANALGESIC THERAPY
     Route: 065
  8. HYDAL [Concomitant]
     Route: 065
  9. SINGULAIR [Concomitant]
     Route: 065
  10. NEUROBION [Concomitant]
     Route: 065
  11. AERIUS [Concomitant]
     Route: 065
  12. DILTIAZEM [Concomitant]
     Route: 065
  13. FOSTER [Concomitant]
     Route: 065
  14. SPIRIVA [Concomitant]
     Route: 065

REACTIONS (3)
  - Pulmonary haemorrhage [Fatal]
  - Haemoptysis [Unknown]
  - Lung abscess [Unknown]
